FAERS Safety Report 13377076 (Version 2)
Quarter: 2017Q2

REPORT INFORMATION
  Report Type: Spontaneous
  Country: US (occurrence: US)
  Receive Date: 20170328
  Receipt Date: 20170510
  Transmission Date: 20170830
  Serious: Yes (Hospitalization, Other)
  Sender: FDA-Public Use
  Company Number: US-UCBSA-2017010893

PATIENT
  Age: 10 Year
  Sex: Female
  Weight: 34 kg

DRUGS (3)
  1. KEPPRA [Suspect]
     Active Substance: LEVETIRACETAM
     Dosage: 17 ML AT NIGHT AND 10 ML IN THE MORNING
     Route: 048
     Dates: end: 20170201
  2. KEPPRA [Suspect]
     Active Substance: LEVETIRACETAM
     Indication: SEIZURE
     Dosage: 5 ML, 2X/DAY (BID)
     Route: 048
     Dates: start: 201503
  3. KEPPRA [Suspect]
     Active Substance: LEVETIRACETAM
     Dosage: 11 ML, 2X/DAY (BID)
     Route: 048

REACTIONS (3)
  - Seizure [Unknown]
  - Central nervous system lesion [Unknown]
  - Postictal paralysis [Recovered/Resolved]

NARRATIVE: CASE EVENT DATE: 201701
